FAERS Safety Report 15396966 (Version 1)
Quarter: 2018Q3

REPORT INFORMATION
  Report Type: Spontaneous
  Country: US (occurrence: US)
  Receive Date: 20180918
  Receipt Date: 20180918
  Transmission Date: 20181010
  Serious: No
  Sender: FDA-Public Use
  Company Number: US-IMPAX LABORATORIES, INC-2018-IPXL-00550

PATIENT
  Sex: Female

DRUGS (1)
  1. BUDESONIDE. [Suspect]
     Active Substance: BUDESONIDE
     Indication: ASTHMA
     Dosage: UNK, 2 /DAY
     Route: 055
     Dates: start: 20180212

REACTIONS (2)
  - Product physical issue [Unknown]
  - Drug ineffective [Recovered/Resolved]
